FAERS Safety Report 7335157-6 (Version None)
Quarter: 2011Q1

REPORT INFORMATION
  Report Type: 
  Country: None (occurrence: None)
  Receive Date: 20110307
  Receipt Date: 20110228
  Transmission Date: 20110831
  Serious: No
  Sender: FDA-Public Use
  Company Number: US-JNJFOC-20110301142

PATIENT
  Sex: Male
  Weight: 95.26 kg

DRUGS (5)
  1. FENTANYL-100 [Suspect]
     Indication: NEUROPATHY PERIPHERAL
     Dosage: NDC: 0781-7241-55
     Route: 062
  2. GLUCOVANCE [Concomitant]
     Indication: DIABETES MELLITUS
     Route: 048
  3. LIPITOR [Concomitant]
     Indication: BLOOD CHOLESTEROL INCREASED
     Dosage: DAILY
     Route: 048
  4. FENTANYL-100 [Suspect]
     Indication: MUSCULOSKELETAL PAIN
     Dosage: NDC: 0781-7241-55
     Route: 062
  5. ACTOS [Concomitant]
     Indication: DIABETES MELLITUS
     Dosage: DAILY
     Route: 048

REACTIONS (3)
  - WRONG TECHNIQUE IN DRUG USAGE PROCESS [None]
  - DRUG INEFFECTIVE [None]
  - DEVICE DAMAGE [None]
